FAERS Safety Report 6411615-3 (Version None)
Quarter: 2009Q4

REPORT INFORMATION
  Report Type: 
  Country: None (occurrence: None)
  Receive Date: 20091020
  Receipt Date: 20091009
  Transmission Date: 20100525
  Serious: Yes (Life-Threatening, Hospitalization)
  Sender: FDA-Public Use
  Company Number: 231747J09USA

PATIENT
  Age: 24 Year
  Sex: Male
  Weight: 59 kg

DRUGS (2)
  1. REBIF [Suspect]
     Indication: MULTIPLE SCLEROSIS
     Dosage: 44 MCG, 3 IN 1 WEEKS, SUBCUTANEOUS
     Route: 058
     Dates: start: 20090812
  2. POTASSIUM (POTASSIUM CHLORIDE) [Concomitant]

REACTIONS (7)
  - ANXIETY [None]
  - ASPIRATION [None]
  - CONVULSION [None]
  - COUGH [None]
  - DYSPNOEA [None]
  - FALL [None]
  - MEMORY IMPAIRMENT [None]
